FAERS Safety Report 19212598 (Version 1)
Quarter: 2021Q2

REPORT INFORMATION
  Report Type: Spontaneous
  Country: FR (occurrence: FR)
  Receive Date: 20210504
  Receipt Date: 20210504
  Transmission Date: 20210717
  Serious: Yes (Other)
  Sender: FDA-Public Use
  Company Number: FR-BRISTOL-MYERS SQUIBB COMPANY-BMS-2021-039386

PATIENT
  Age: 27 Year
  Sex: Male
  Weight: 75 kg

DRUGS (1)
  1. EFAVIRENZ. [Suspect]
     Active Substance: EFAVIRENZ
     Indication: PROPHYLAXIS AGAINST HIV INFECTION
     Dosage: 1 DOSAGE FORM, QD
     Route: 048
     Dates: start: 20210401

REACTIONS (6)
  - Nausea [Recovering/Resolving]
  - Vertigo [Recovering/Resolving]
  - Pyrexia [Recovering/Resolving]
  - Confusional state [Recovering/Resolving]
  - Loss of consciousness [Recovering/Resolving]
  - Pruritus [Recovering/Resolving]

NARRATIVE: CASE EVENT DATE: 20210408
